FAERS Safety Report 8956441 (Version 5)
Quarter: 2013Q2

REPORT INFORMATION
  Report Type: Spontaneous
  Country: US (occurrence: US)
  Receive Date: 20121210
  Receipt Date: 20130409
  Transmission Date: 20140414
  Serious: Yes (Other)
  Sender: FDA-Public Use
  Company Number: US-PFIZER INC-2012307207

PATIENT
  Age: 85 Year
  Sex: Female
  Weight: 61.22 kg

DRUGS (7)
  1. NORVASC [Suspect]
     Dosage: 10 MG, 1X/DAY
     Route: 048
  2. LIPITOR [Suspect]
     Indication: BLOOD CHOLESTEROL INCREASED
     Dosage: 20 MG, 1X/DAY
     Route: 048
  3. FUROSEMIDE [Concomitant]
     Dosage: UNK
  4. ISOSORBIDE [Concomitant]
     Dosage: UNK
  5. RANEXA [Concomitant]
     Dosage: 500 MG, 2X/DAY
  6. CLOPIDOGREL [Concomitant]
     Dosage: 75 MG, UNK
  7. METOPROLOL [Concomitant]
     Dosage: UNK

REACTIONS (2)
  - Coronary artery occlusion [Unknown]
  - Confusional state [Unknown]
